FAERS Safety Report 24430613 (Version 1)
Quarter: 2024Q4

REPORT INFORMATION
  Report Type: Report from Study
  Country: CA (occurrence: CA)
  Receive Date: 20241013
  Receipt Date: 20241013
  Transmission Date: 20250114
  Serious: Yes (Hospitalization)
  Sender: ABBVIE
  Company Number: CA-ABBVIE-5957180

PATIENT
  Age: 42 Year
  Sex: Male
  Weight: 87.9 kg

DRUGS (7)
  1. RISANKIZUMAB [Suspect]
     Active Substance: RISANKIZUMAB
     Indication: Crohn^s disease
     Route: 058
     Dates: start: 20240808
  2. RISANKIZUMAB [Suspect]
     Active Substance: RISANKIZUMAB
     Indication: Crohn^s disease
     Route: 042
     Dates: start: 20240509, end: 20240712
  3. IMMUNOGLOBULIN [Concomitant]
     Indication: Immunodeficiency common variable
     Route: 042
     Dates: start: 2001
  4. BUDESONIDE [Concomitant]
     Active Substance: BUDESONIDE
     Indication: Chronic sinusitis
     Dosage: DOSE-64
     Route: 048
     Dates: start: 2001
  5. CALCIUM CARBONATE [Concomitant]
     Active Substance: CALCIUM CARBONATE
     Indication: Immunodeficiency common variable
     Route: 048
     Dates: start: 2001
  6. VITAMIN D3 [Concomitant]
     Active Substance: CHOLECALCIFEROL
     Indication: Vitamin D deficiency
     Route: 048
     Dates: start: 2001
  7. HYDROCORTISONE [Concomitant]
     Active Substance: HYDROCORTISONE
     Indication: Eczema
     Dosage: TIME INTERVAL: AS NECESSARY
     Route: 061
     Dates: start: 202211

REACTIONS (2)
  - Cholecystitis acute [Not Recovered/Not Resolved]
  - Abdominal pain [Recovered/Resolved]

NARRATIVE: CASE EVENT DATE: 20240918
